FAERS Safety Report 8136930-7 (Version None)
Quarter: 2012Q1

REPORT INFORMATION
  Report Type: 
  Country: None (occurrence: None)
  Receive Date: 20120214
  Receipt Date: 20120209
  Transmission Date: 20120608
  Serious: Yes (Other)
  Sender: FDA-Public Use
  Company Number: US-MERCK-1111USA00240

PATIENT
  Age: 69 Year
  Sex: Female

DRUGS (5)
  1. BONIVA [Concomitant]
     Indication: OSTEOPENIA
     Route: 065
     Dates: start: 20060201, end: 20060101
  2. FOSAMAX [Suspect]
     Indication: OSTEOPENIA
     Route: 048
     Dates: start: 20000101, end: 20060201
  3. ALENDRONATE SODIUM [Suspect]
     Route: 048
  4. BONIVA [Concomitant]
     Indication: OSTEOPOROSIS
     Route: 065
     Dates: start: 20060201, end: 20060101
  5. FOSAMAX [Suspect]
     Route: 048
     Dates: start: 20060101, end: 20091001

REACTIONS (8)
  - GAIT DISTURBANCE [None]
  - PAIN [None]
  - ANXIETY [None]
  - LOW TURNOVER OSTEOPATHY [None]
  - DIABETES MELLITUS [None]
  - FEMUR FRACTURE [None]
  - STRESS FRACTURE [None]
  - MUSCLE STRAIN [None]
